FAERS Safety Report 6398465-1 (Version None)
Quarter: 2009Q4

REPORT INFORMATION
  Report Type: 
  Country: None (occurrence: None)
  Receive Date: 20091013
  Receipt Date: 20091008
  Transmission Date: 20100525
  Serious: Yes (Other)
  Sender: FDA-Public Use
  Company Number: A0810945A

PATIENT
  Sex: Female

DRUGS (12)
  1. LOVAZA [Suspect]
     Indication: DRUG USE FOR UNKNOWN INDICATION
     Dosage: 1CAP PER DAY
     Route: 048
     Dates: start: 20090716, end: 20091007
  2. ENULOSE [Concomitant]
  3. DOCUSATE [Concomitant]
  4. UNSPECIFIED MEDICATION [Concomitant]
  5. TYLENOL (CAPLET) [Concomitant]
  6. MEGACE [Concomitant]
  7. NAMENDA [Concomitant]
  8. IRRIGATION [Concomitant]
     Indication: BLADDER IRRIGATION
  9. ANUSOL HC [Concomitant]
  10. THERAPEUTIC M [Concomitant]
  11. ASCORBIC ACID [Concomitant]
  12. SELSUN BLUE SHAMPOO [Concomitant]

REACTIONS (4)
  - DRUG ADMINISTRATION ERROR [None]
  - PETECHIAE [None]
  - SKIN DISORDER [None]
  - SKIN LACERATION [None]
